FAERS Safety Report 9860008 (Version 1)
Quarter: 2014Q1

REPORT INFORMATION
  Report Type: Spontaneous
  Country: US (occurrence: US)
  Receive Date: 20140131
  Receipt Date: 20140131
  Transmission Date: 20141002
  Serious: Yes (Hospitalization, Other)
  Sender: FDA-Public Use
  Company Number: US-GILEAD-2014-0093377

PATIENT
  Sex: Female

DRUGS (1)
  1. LETAIRIS [Suspect]
     Indication: PRODUCT USED FOR UNKNOWN INDICATION
     Dosage: 5 MG, QD
     Route: 048
     Dates: start: 20130109

REACTIONS (8)
  - Menorrhagia [Unknown]
  - Haemorrhage [Unknown]
  - Malaise [Unknown]
  - Pericardial effusion [Unknown]
  - Dyspnoea [Unknown]
  - Cardiomegaly [Unknown]
  - Weight decreased [Unknown]
  - Syncope [Unknown]
